FAERS Safety Report 14999521 (Version 2)
Quarter: 2018Q4

REPORT INFORMATION
  Report Type: Spontaneous
  Country: GB (occurrence: GB)
  Receive Date: 20180612
  Receipt Date: 20181129
  Transmission Date: 20190204
  Serious: Yes (Disabling, Other)
  Sender: FDA-Public Use
  Company Number: GB-ACCORD-068172

PATIENT
  Age: 70 Year
  Sex: Female
  Weight: 102 kg

DRUGS (4)
  1. PARAFFIN/WOOL FAT [Concomitant]
     Dosage: AS DIRECTED.
     Dates: start: 20170926
  2. LAXIDO [Concomitant]
     Active Substance: POLYETHYLENE GLYCOL 3350\POTASSIUM CHLORIDE\SODIUM BICARBONATE\SODIUM CHLORIDE
     Indication: CONSTIPATION
     Dosage: 1-3 SACHETS DAILY.
     Dates: start: 20171003
  3. NAPROXEN. [Concomitant]
     Active Substance: NAPROXEN
     Dosage: WITH OR AFTER FOOD.
     Dates: start: 20171016
  4. LETROZOLE. [Suspect]
     Active Substance: LETROZOLE
     Indication: PRODUCT USED FOR UNKNOWN INDICATION
     Dates: start: 20160826, end: 20170601

REACTIONS (6)
  - Depressed mood [Unknown]
  - Bone pain [Recovering/Resolving]
  - Subchondral insufficiency fracture [Unknown]
  - Myalgia [Recovered/Resolved]
  - Bone marrow oedema syndrome [Unknown]
  - Arthralgia [Recovered/Resolved]
